FAERS Safety Report 5374551-X (Version None)
Quarter: 2007Q2

REPORT INFORMATION
  Report Type: 
  Country: None (occurrence: None)
  Receive Date: 20070627
  Receipt Date: 20060605
  Transmission Date: 20071010
  Serious: Yes (Other)
  Sender: FDA-Public Use
  Company Number: 450836

PATIENT
  Age: 75 Year
  Sex: Female

DRUGS (6)
  1. XELODA [Suspect]
     Indication: DRUG USE FOR UNKNOWN INDICATION
     Dosage: 500 MG 3 PER DAY; ORAL
     Route: 048
     Dates: start: 20060502, end: 20060604
  2. XENICAL [Concomitant]
  3. ACETAMINOPHEN [Concomitant]
  4. SYNTHROID [Concomitant]
  5. FLOVENT [Concomitant]
  6. FLONASE [Concomitant]

REACTIONS (8)
  - ANAEMIA [None]
  - BONE MARROW DISORDER [None]
  - HOT FLUSH [None]
  - MALAISE [None]
  - MEDICATION ERROR [None]
  - NAUSEA [None]
  - PLATELET COUNT DECREASED [None]
  - PRURITUS [None]
